FAERS Safety Report 8962587 (Version 1)
Quarter: 2012Q4

REPORT INFORMATION
  Report Type: 
  Country: US (occurrence: US)
  Receive Date: 20121214
  Receipt Date: 20121214
  Transmission Date: 20130627
  Serious: Yes (Other)
  Sender: FDA-Public Use
  Company Number: US-BAYER-2012-127990

PATIENT
  Age: 11 Year
  Sex: Female
  Weight: 29.93 kg

DRUGS (2)
  1. RID 1-2-3 SYSTEM [Suspect]
     Indication: LICE INFESTATION
     Dosage: 1 DOSE, RID - Day 1 and Day 8
     Route: 061
     Dates: start: 20121114, end: 20121121
  2. RID SHAMPOO [Suspect]
     Indication: LICE INFESTATION
     Dosage: 1 DOSE
     Route: 061
     Dates: start: 20121128, end: 20121128

REACTIONS (3)
  - Chemical injury [None]
  - Skin exfoliation [Not Recovered/Not Resolved]
  - Drug ineffective [None]
